FAERS Safety Report 9433483 (Version 1)
Quarter: 2013Q3

REPORT INFORMATION
  Report Type: Spontaneous
  Country: US (occurrence: US)
  Receive Date: 20130731
  Receipt Date: 20130731
  Transmission Date: 20140515
  Serious: No
  Sender: FDA-Public Use
  Company Number: US-009507513-1307USA014259

PATIENT
  Age: 64 Year
  Sex: Male

DRUGS (2)
  1. JANUMET [Suspect]
     Indication: DIABETES MELLITUS
     Dosage: APPROXIMATELY ONE MONTH AGO
     Route: 048
  2. NORVASC [Concomitant]

REACTIONS (1)
  - Oedema peripheral [Unknown]
